FAERS Safety Report 4532175-8 (Version None)
Quarter: 2004Q4

REPORT INFORMATION
  Report Type: 
  Country: None (occurrence: None)
  Receive Date: 20041217
  Receipt Date: 20041206
  Transmission Date: 20050328
  Serious: Yes (Other)
  Sender: FDA-Public Use
  Company Number: DE-2004-036154

PATIENT
  Sex: Female

DRUGS (2)
  1. LEVONORGESTREL AND ETHINYL ESTRADIOL [Suspect]
     Dosage: 1 TAB(S), ORAL
     Route: 048
     Dates: start: 20040101
  2. LAMICTAL [Concomitant]

REACTIONS (1)
  - PETIT MAL EPILEPSY [None]
